FAERS Safety Report 7559673-7 (Version None)
Quarter: 2011Q2

REPORT INFORMATION
  Report Type: 
  Country: None (occurrence: None)
  Receive Date: 20110621
  Receipt Date: 20110608
  Transmission Date: 20111010
  Serious: Yes (Hospitalization, Other)
  Sender: FDA-Public Use
  Company Number: US-CELGENEUS-163-21880-11022736

PATIENT
  Sex: Female

DRUGS (12)
  1. ZOMETA [Concomitant]
     Dosage: 4MG/5ML
     Route: 065
  2. REVLIMID [Suspect]
     Dosage: 5 MILLIGRAM
     Route: 048
     Dates: start: 20101101, end: 20110214
  3. OXYCONTIN [Concomitant]
     Indication: PAIN
     Dosage: 80 MILLIGRAM
     Route: 048
  4. GLIPIZIDE [Concomitant]
     Dosage: 2.5 MILLIGRAM
     Route: 065
  5. REVLIMID [Suspect]
     Indication: MULTIPLE MYELOMA
     Dosage: 5 MILLIGRAM
     Route: 048
     Dates: start: 20090603
  6. DECADRON [Concomitant]
     Dosage: 40 MILLIGRAM
     Route: 048
     Dates: start: 20101001
  7. ZOCOR [Concomitant]
     Dosage: 20 MILLIGRAM
     Route: 048
  8. LOMOTIL [Concomitant]
     Dosage: 2.5-0.25MG
     Route: 065
  9. REVLIMID [Suspect]
     Dosage: 5 MILLIGRAM
     Route: 048
     Dates: start: 20110218
  10. ASPIRIN [Concomitant]
     Dosage: 81 MILLIGRAM
     Route: 065
  11. VITAMIN D2 [Concomitant]
     Dosage: 5000 UNIT
     Route: 065
  12. LANOXIN [Concomitant]
     Indication: ARRHYTHMIA
     Dosage: 125 MICROGRAM
     Route: 048
     Dates: start: 20110207

REACTIONS (2)
  - SKULL FRACTURE [None]
  - ARRHYTHMIA [None]
